FAERS Safety Report 8095790-3 (Version None)
Quarter: 2012Q1

REPORT INFORMATION
  Report Type: 
  Country: None (occurrence: None)
  Receive Date: 20120129
  Receipt Date: 20111207
  Transmission Date: 20120608
  Serious: No
  Sender: FDA-Public Use
  Company Number: US-ABBOTT-11P-163-0882284-00

PATIENT
  Sex: Female

DRUGS (1)
  1. HUMIRA [Suspect]
     Indication: RHEUMATOID ARTHRITIS
     Route: 058
     Dates: start: 20110805

REACTIONS (7)
  - RASH [None]
  - ECZEMA [None]
  - HEADACHE [None]
  - EXOSTOSIS [None]
  - ERYTHEMA [None]
  - OSTEOPOROSIS [None]
  - ARTHRALGIA [None]
